FAERS Safety Report 4960772-4 (Version None)
Quarter: 2006Q2

REPORT INFORMATION
  Report Type: 
  Country: None (occurrence: None)
  Receive Date: 20060403
  Receipt Date: 20051004
  Transmission Date: 20061013
  Serious: Yes (Hospitalization)
  Sender: FDA-Public Use
  Company Number: US-MERCK-0510USA05558

PATIENT
  Age: 67 Year
  Sex: Male
  Weight: 68 kg

DRUGS (6)
  1. VIOXX [Suspect]
     Indication: SCIATICA
     Route: 048
     Dates: start: 20010401, end: 20041001
  2. MEPROBAMATE [Concomitant]
     Route: 065
  3. HYTRIN [Concomitant]
     Route: 065
  4. NASONEX [Concomitant]
     Route: 065
  5. FOSAMAX [Concomitant]
     Route: 065
  6. ZOLOFT [Concomitant]
     Route: 065

REACTIONS (2)
  - CORONARY ARTERY OCCLUSION [None]
  - HERNIA [None]
